FAERS Safety Report 12736721 (Version 33)
Quarter: 2023Q2

REPORT INFORMATION
  Report Type: Report from Study
  Country: CA (occurrence: CA)
  Receive Date: 20160913
  Receipt Date: 20230508
  Transmission Date: 20230721
  Serious: Yes (Death, Hospitalization, Other)
  Sender: FDA-Public Use
  Company Number: PHHY2016CA124821

PATIENT
  Age: 78 Year
  Sex: Male

DRUGS (15)
  1. SANDOSTATIN LAR DEPOT [Suspect]
     Active Substance: OCTREOTIDE ACETATE
     Indication: Carcinoid tumour of the small bowel
     Dosage: UNK
     Route: 065
     Dates: start: 201601
  2. SANDOSTATIN LAR DEPOT [Suspect]
     Active Substance: OCTREOTIDE ACETATE
     Dosage: 30 MG, QMO
     Route: 030
     Dates: start: 20160810
  3. SANDOSTATIN LAR DEPOT [Suspect]
     Active Substance: OCTREOTIDE ACETATE
  4. VITAMIN B12 [Concomitant]
     Active Substance: CYANOCOBALAMIN
     Indication: Product used for unknown indication
     Dosage: 1200 UG, QD
     Route: 065
  5. EXELON [Concomitant]
     Active Substance: RIVASTIGMINE TARTRATE
     Indication: Product used for unknown indication
     Dosage: 9.5 MG, QD (1 PATCH AT THE SAME TIME EVERY DAY)
     Route: 062
  6. METFORMIN [Concomitant]
     Active Substance: METFORMIN HYDROCHLORIDE
     Indication: Product used for unknown indication
     Dosage: 850 MG, BID (ONE TABLET AT BREAKFAST AND DINNER)
     Route: 065
  7. SYNTHROID [Concomitant]
     Active Substance: LEVOTHYROXINE SODIUM
     Indication: Product used for unknown indication
     Dosage: 0.100 MG, QD
     Route: 065
  8. ATORVASTATIN [Concomitant]
     Active Substance: ATORVASTATIN
     Indication: Product used for unknown indication
     Dosage: 20 MG, QD (ONE TABLET ONCE PER DAY AT THE SAME TIME EVERY DAY)
     Route: 065
  9. AMLODIPINE [Concomitant]
     Active Substance: AMLODIPINE BESYLATE
     Indication: Product used for unknown indication
     Dosage: 5 MG, QD (ONE TABLET/DAY WITH BREAKFAST REGULARLY (BP))
     Route: 065
  10. CETIRIZINE [Concomitant]
     Active Substance: CETIRIZINE HYDROCHLORIDE
     Indication: Hypersensitivity
     Dosage: 10 MG, QD (ONE TABLET ONCE PER DAY DURING 8 DAYS)
     Route: 065
  11. IODOSORB [Concomitant]
     Active Substance: CADEXOMER IODINE
     Indication: Product used for unknown indication
     Dosage: EVERY 2 DAYS
     Route: 003
  12. PREDNISOLONE [Concomitant]
     Active Substance: PREDNISOLONE
     Indication: Product used for unknown indication
     Dosage: 5 MG,(1 TABLET AT BREAKFAST X2 DAYS,6 TAB X2 DAYS,4 TAB X 2 DAYS,2 TAB X 2 DAYS AND DISCONTINUE)
     Route: 065
  13. ASPIRIN [Concomitant]
     Active Substance: ASPIRIN
     Indication: Prophylaxis
     Dosage: 80 MG, QD
     Route: 065
     Dates: start: 20180514
  14. SITAGLIPTIN [Concomitant]
     Active Substance: SITAGLIPTIN
     Indication: Diabetes mellitus
     Dosage: 1 DF, BID (AT LUNCH AND AT SUPPER - REGULARLY)
     Route: 065
  15. GLICLAZIDE [Concomitant]
     Active Substance: GLICLAZIDE
     Indication: Diabetes mellitus
     Dosage: 1 DF, QD (WITH LUNCH - REGULARLY)
     Route: 065

REACTIONS (28)
  - Death [Fatal]
  - Tremor [Unknown]
  - Anaphylactic reaction [Unknown]
  - Dyspnoea [Unknown]
  - Pulmonary embolism [Recovered/Resolved]
  - Postoperative wound infection [Unknown]
  - Dementia Alzheimer^s type [Unknown]
  - Blood pressure systolic increased [Unknown]
  - Blood pressure diastolic increased [Unknown]
  - Hypotension [Unknown]
  - Chromaturia [Unknown]
  - Urine albumin/creatinine ratio increased [Unknown]
  - Blood iron decreased [Unknown]
  - Neutrophil count increased [Unknown]
  - Blood potassium decreased [Unknown]
  - Lymphocyte count decreased [Unknown]
  - C-reactive protein increased [Unknown]
  - Urine ketone body present [Unknown]
  - Blood urine present [Unknown]
  - Bacterial test positive [Unknown]
  - Glucose urine present [Unknown]
  - Crystal urine present [Unknown]
  - Haemoglobin decreased [Unknown]
  - Blood pressure increased [Unknown]
  - Urinary tract infection [Unknown]
  - Gait disturbance [Unknown]
  - Blood glucose increased [Unknown]
  - Injection site haemorrhage [Recovered/Resolved]

NARRATIVE: CASE EVENT DATE: 20160101
